FAERS Safety Report 24429275 (Version 1)
Quarter: 2024Q4

REPORT INFORMATION
  Report Type: Spontaneous
  Country: RU (occurrence: RU)
  Receive Date: 20241011
  Receipt Date: 20241011
  Transmission Date: 20250115
  Serious: Yes (Hospitalization)
  Sender: GILEAD
  Company Number: RU-GILEAD-2024-0689760

PATIENT
  Age: 32 Year
  Sex: Male

DRUGS (1)
  1. BIKTARVY [Suspect]
     Active Substance: BICTEGRAVIR SODIUM\EMTRICITABINE\TENOFOVIR ALAFENAMIDE FUMARATE
     Indication: Product used for unknown indication
     Dosage: UNK
     Route: 065
     Dates: start: 2023

REACTIONS (4)
  - Spondylitis [Unknown]
  - Chest discomfort [Unknown]
  - Joint stiffness [Unknown]
  - Finger deformity [Unknown]

NARRATIVE: CASE EVENT DATE: 20240701
